FAERS Safety Report 9525617 (Version 1)
Quarter: 2013Q1

REPORT INFORMATION
  Report Type: Spontaneous
  Country: US (occurrence: None)
  Receive Date: 20130314
  Receipt Date: 20130314
  Transmission Date: 20140127
  Serious: Yes (Other)
  Sender: FDA-Public Use
  Company Number: 1301USA014113

PATIENT
  Age: 62 Year
  Sex: Male

DRUGS (8)
  1. PEGINTRON [Suspect]
     Indication: HEPATITIS C
     Route: 058
  2. VICTRELIS (BOCEPREVIR) CAPSULE, 200MG [Suspect]
     Route: 048
  3. RIBAPAK (RIBAVIRIN) [Concomitant]
  4. RAMIPRIL (RAMIPRIL) [Concomitant]
  5. LEVEMIR (INSULIN DETEMIR) [Concomitant]
  6. VICODIN (ACETAMINOPHEN, HYDROCODONE BITARTRATE) [Concomitant]
  7. SPIRONOLACTONE (SPIRONOLACTONE) [Concomitant]
  8. IBUPROFEN (IBUPROFEN) [Concomitant]

REACTIONS (4)
  - Fatigue [None]
  - Nausea [None]
  - Headache [None]
  - Depression [None]
